FAERS Safety Report 17639605 (Version 2)
Quarter: 2020Q3

REPORT INFORMATION
  Report Type: Spontaneous
  Country: US (occurrence: US)
  Receive Date: 20200407
  Receipt Date: 20200813
  Transmission Date: 20201102
  Serious: Yes (Other)
  Sender: FDA-Public Use
  Company Number: US-GILEAD-2020-0456932

PATIENT
  Age: 29 Year
  Sex: Female

DRUGS (57)
  1. METRONIDAZOLE. [Concomitant]
     Active Substance: METRONIDAZOLE
  2. ZOFRAN [Concomitant]
     Active Substance: ONDANSETRON HYDROCHLORIDE
  3. CHLORHEXIDINE HCL [Concomitant]
  4. SULFAMETHOXAZOLE [Concomitant]
     Active Substance: SULFAMETHOXAZOLE
  5. TRAMADOL. [Concomitant]
     Active Substance: TRAMADOL
  6. TRIUMEQ [Concomitant]
     Active Substance: ABACAVIR SULFATE\DOLUTEGRAVIR SODIUM\LAMIVUDINE
  7. CEFUROXIME. [Concomitant]
     Active Substance: CEFUROXIME
  8. KEFLEX [Concomitant]
     Active Substance: CEPHALEXIN
  9. PRENATAL VITAMINS [MINERALS NOS;VITAMINS NOS] [Concomitant]
     Active Substance: MINERALS\VITAMINS
  10. FLUCONAZOLE. [Concomitant]
     Active Substance: FLUCONAZOLE
  11. MUPIROCIN. [Concomitant]
     Active Substance: MUPIROCIN
  12. PERCOCET [OXYCODONE HYDROCHLORIDE;OXYCODONE TEREPHTHALATE;PARACETAMOL] [Concomitant]
     Active Substance: ACETAMINOPHEN\OXYCODONE HYDROCHLORIDE\OXYCODONE TEREPHTHALATE
  13. IBUPROFEN. [Concomitant]
     Active Substance: IBUPROFEN
  14. POLYETHYLENE GLYCOL [Concomitant]
     Active Substance: POLYETHYLENE GLYCOLS
  15. PODOFILOX. [Concomitant]
     Active Substance: PODOFILOX
  16. MONUROL [Concomitant]
     Active Substance: FOSFOMYCIN TROMETHAMINE
  17. IMIQUIMOD. [Concomitant]
     Active Substance: IMIQUIMOD
  18. BIKTARVY [Concomitant]
     Active Substance: BICTEGRAVIR SODIUM\EMTRICITABINE\TENOFOVIR ALAFENAMIDE FUMARATE
  19. DESCOVY [Concomitant]
     Active Substance: EMTRICITABINE\TENOFOVIR ALAFENAMIDE FUMARATE
  20. CLINDAMYCIN. [Concomitant]
     Active Substance: CLINDAMYCIN
  21. MEDROXYPROGESTERONE [Concomitant]
     Active Substance: MEDROXYPROGESTERONE
  22. ECONAZOLE. [Concomitant]
     Active Substance: ECONAZOLE NITRATE
  23. NITROFURANTOIN. [Concomitant]
     Active Substance: NITROFURANTOIN
  24. CLOBETASOL [Concomitant]
     Active Substance: CLOBETASOL
  25. AMOX+AC CLAV ACV [Concomitant]
  26. ENOXAPARIN [Concomitant]
     Active Substance: ENOXAPARIN
  27. CEPHALEXIN AMEL [Concomitant]
     Active Substance: CEPHALEXIN
  28. HYDROMORPHONE [Concomitant]
     Active Substance: HYDROMORPHONE
  29. ATAZANAVIR. [Concomitant]
     Active Substance: ATAZANAVIR
  30. LEVAQUIN [Concomitant]
     Active Substance: LEVOFLOXACIN
  31. MORPHINE [Concomitant]
     Active Substance: MORPHINE
  32. ALPRAZOLAM. [Concomitant]
     Active Substance: ALPRAZOLAM
  33. ACYCLOVIR ABBOTT VIAL [Concomitant]
  34. SILVER SULFADIAZINE. [Concomitant]
     Active Substance: SILVER SULFADIAZINE
  35. FERROUS SULFATE. [Concomitant]
     Active Substance: FERROUS SULFATE
  36. CLEOCIN S [Concomitant]
  37. SENNA LAXATIVE [Concomitant]
     Active Substance: SENNOSIDES
  38. ASPIRIN (E.C.) [Concomitant]
     Active Substance: ASPIRIN
  39. GABAPENTIN. [Concomitant]
     Active Substance: GABAPENTIN
  40. CITALOPRAM [Concomitant]
     Active Substance: CITALOPRAM HYDROBROMIDE
  41. DICLOXACILLIN [Concomitant]
     Active Substance: DICLOXACILLIN
  42. REYATAZ [Concomitant]
     Active Substance: ATAZANAVIR SULFATE
  43. JUNEL [Concomitant]
     Active Substance: ETHINYL ESTRADIOL\NORETHINDRONE ACETATE
  44. VALACYCLOVIR HCL [Concomitant]
     Active Substance: VALACYCLOVIR HYDROCHLORIDE
  45. RITONAVIR. [Concomitant]
     Active Substance: RITONAVIR
  46. AZITHROMYCIN ANHYDROUS. [Concomitant]
     Active Substance: AZITHROMYCIN ANHYDROUS
  47. LORATADINE. [Concomitant]
     Active Substance: LORATADINE
  48. TIVICAY [Concomitant]
     Active Substance: DOLUTEGRAVIR SODIUM
  49. PANTOPRAZOLE [Concomitant]
     Active Substance: PANTOPRAZOLE
  50. NORTRIPTYLINE [Concomitant]
     Active Substance: NORTRIPTYLINE
  51. DOCQLACE [Concomitant]
     Active Substance: DOCUSATE SODIUM
  52. ATRIPLA [Suspect]
     Active Substance: EFAVIRENZ\EMTRICITABINE\TENOFOVIR DISOPROXIL FUMARATE
     Indication: HIV INFECTION
     Dosage: 1 DOSAGE FORM, QD
     Route: 048
     Dates: start: 201001, end: 201801
  53. TRUVADA [Suspect]
     Active Substance: EMTRICITABINE\TENOFOVIR DISOPROXIL FUMARATE
     Indication: HIV INFECTION
     Dosage: 1 DOSAGE FORM, QD
     Route: 048
     Dates: start: 200409, end: 201001
  54. VIREAD [Suspect]
     Active Substance: TENOFOVIR DISOPROXIL FUMARATE
     Indication: HIV INFECTION
     Dosage: UNK
     Route: 065
     Dates: start: 200111, end: 200401
  55. BACTRIM [Concomitant]
     Active Substance: SULFAMETHOXAZOLE\TRIMETHOPRIM
  56. MULTI VIT [Concomitant]
     Active Substance: VITAMINS
  57. NORVIR [Concomitant]
     Active Substance: RITONAVIR

REACTIONS (3)
  - Bone density decreased [Not Recovered/Not Resolved]
  - Tooth loss [Not Recovered/Not Resolved]
  - Osteonecrosis [Not Recovered/Not Resolved]

NARRATIVE: CASE EVENT DATE: 201101
